FAERS Safety Report 9445760 (Version 1)
Quarter: 2013Q3

REPORT INFORMATION
  Report Type: Spontaneous
  Country: US (occurrence: US)
  Receive Date: 20130807
  Receipt Date: 20130807
  Transmission Date: 20140515
  Serious: Yes (Death)
  Sender: FDA-Public Use
  Company Number: US-TEVA-422967USA

PATIENT
  Sex: Male
  Weight: 101 kg

DRUGS (1)
  1. NUVIGIL [Suspect]
     Indication: ASTHENIA
     Route: 048

REACTIONS (2)
  - Prostate cancer metastatic [Fatal]
  - Off label use [Unknown]
